FAERS Safety Report 23122448 (Version 2)
Quarter: 2023Q4

REPORT INFORMATION
  Report Type: Spontaneous
  Country: CA (occurrence: CA)
  Receive Date: 20231030
  Receipt Date: 20231229
  Transmission Date: 20240109
  Serious: Yes (Other)
  Sender: FDA-Public Use
  Company Number: None

PATIENT
  Sex: Male

DRUGS (7)
  1. CABAZITAXEL [Suspect]
     Active Substance: CABAZITAXEL
     Indication: Prostate cancer metastatic
     Dosage: 25 MG/M2
     Route: 065
     Dates: end: 20230328
  2. DOCETAXEL [Suspect]
     Active Substance: DOCETAXEL\DOCETAXEL ANHYDROUS
     Indication: Prostate cancer metastatic
     Dosage: 75 MG/M2, Q3W
     Route: 065
     Dates: start: 20210307, end: 20211007
  3. ABIRATERONE ACETATE [Suspect]
     Active Substance: ABIRATERONE ACETATE
     Indication: Prostate cancer metastatic
     Dosage: 1 DF, QD
     Route: 048
     Dates: start: 20211108, end: 20220407
  4. GOSERELIN [Suspect]
     Active Substance: GOSERELIN
     Indication: Prostate cancer metastatic
     Dosage: 10.8 MG, Q3M
     Route: 058
     Dates: start: 20210208, end: 20230607
  5. HYDROMORPHONE [Concomitant]
     Active Substance: HYDROMORPHONE
     Indication: Product used for unknown indication
     Dosage: 1.5 MG, PRN
     Route: 065
     Dates: start: 20230407
  6. PREGABALIN [Concomitant]
     Active Substance: PREGABALIN
     Indication: Product used for unknown indication
     Dosage: 75 MG, QD
     Route: 048
     Dates: start: 20230510
  7. PREDNISOLONE [Suspect]
     Active Substance: PREDNISOLONE

REACTIONS (3)
  - Malignant neoplasm progression [Unknown]
  - Prostate cancer metastatic [Unknown]
  - Condition aggravated [Unknown]
